FAERS Safety Report 5857483-X (Version None)
Quarter: 2008Q3

REPORT INFORMATION
  Report Type: 
  Country: None (occurrence: None)
  Receive Date: 20080826
  Receipt Date: 20080818
  Transmission Date: 20090109
  Serious: Yes (Hospitalization, Other)
  Sender: FDA-Public Use
  Company Number: US-TEVA-176087USA

PATIENT
  Age: 18 Year
  Sex: Female

DRUGS (2)
  1. MINOCYCLINE HYDROCHLORIDE 50 MG CAPSULES [Suspect]
     Indication: ACNE
     Route: 048
  2. SERTRALINE [Concomitant]

REACTIONS (1)
  - LACTIC ACIDOSIS [None]
